FAERS Safety Report 12789624 (Version 1)
Quarter: 2016Q3

REPORT INFORMATION
  Report Type: Spontaneous
  Country: JP (occurrence: JP)
  Receive Date: 20160928
  Receipt Date: 20160928
  Transmission Date: 20161109
  Serious: Yes (Life-Threatening, Other)
  Sender: FDA-Public Use
  Company Number: JP-RECORDATI RARE DISEASES-JP-R13005-16-00237

PATIENT
  Age: 3 Day
  Sex: Male
  Weight: 1.11 kg

DRUGS (2)
  1. INDOCIN [Suspect]
     Active Substance: INDOMETHACIN\INDOMETHACIN SODIUM
     Route: 065
     Dates: start: 20110112, end: 20110112
  2. INDOCIN [Suspect]
     Active Substance: INDOMETHACIN\INDOMETHACIN SODIUM
     Indication: PATENT DUCTUS ARTERIOSUS
     Route: 065
     Dates: start: 20110112, end: 20110112

REACTIONS (3)
  - Sepsis [Unknown]
  - Gastrointestinal perforation [Unknown]
  - Disseminated intravascular coagulation [Unknown]

NARRATIVE: CASE EVENT DATE: 20110114
